FAERS Safety Report 7603439-6 (Version None)
Quarter: 2011Q3

REPORT INFORMATION
  Report Type: 
  Country: None (occurrence: None)
  Receive Date: 20110712
  Receipt Date: 20110707
  Transmission Date: 20111222
  Serious: Yes (Other)
  Sender: FDA-Public Use
  Company Number: US-PFIZER INC-2009252258

PATIENT
  Sex: Female

DRUGS (8)
  1. PHENYTOIN [Suspect]
     Dosage: UNK
  2. CLONIDINE [Concomitant]
     Indication: HYPERTENSION
     Dosage: 0.125 MG, 1X/DAY
     Route: 048
  3. NEXIUM [Concomitant]
     Indication: GASTROOESOPHAGEAL REFLUX DISEASE
     Dosage: 40 MG, 1X/DAY
     Route: 048
  4. DILANTIN [Suspect]
     Indication: CONVULSION
     Dosage: 600 MG, 1X/DAY
     Route: 048
     Dates: start: 20081001
  5. DILANTIN [Suspect]
     Dosage: 100 MG, UNK
     Route: 048
  6. XALATAN [Suspect]
     Indication: GLAUCOMA
     Dosage: 1 DROP IN EACH EYE DAILY
     Route: 047
     Dates: start: 20090401
  7. LISINOPRIL [Concomitant]
     Indication: HYPERTENSION
     Dosage: 20 MG, 1X/DAY
     Route: 048
  8. LIPITOR [Concomitant]
     Indication: BLOOD CHOLESTEROL INCREASED
     Dosage: 20 MG, 1X/DAY
     Route: 048

REACTIONS (7)
  - GLAUCOMA [None]
  - CONFUSIONAL STATE [None]
  - CONVULSION [None]
  - TOXICITY TO VARIOUS AGENTS [None]
  - DIZZINESS [None]
  - ANTICONVULSANT DRUG LEVEL INCREASED [None]
  - HYPOAESTHESIA [None]
